FAERS Safety Report 20742267 (Version 2)
Quarter: 2022Q2

REPORT INFORMATION
  Report Type: Other
  Country: US (occurrence: None)
  Receive Date: 20220423
  Receipt Date: 20220427
  Transmission Date: 20220721
  Serious: Yes (Death)
  Sender: FDA-Public Use
  Company Number: US-ROCHE-3079560

PATIENT
  Age: 90 Year
  Sex: Male

DRUGS (14)
  1. XOLAIR [Suspect]
     Active Substance: OMALIZUMAB
     Indication: Chronic spontaneous urticaria
     Dosage: INJECT 300MG SUBCUTANEOUSLY EVERY 4 WEEK(S)
     Route: 058
  2. XOLAIR [Suspect]
     Active Substance: OMALIZUMAB
  3. XOLAIR [Suspect]
     Active Substance: OMALIZUMAB
  4. AZELASTINE [Concomitant]
     Active Substance: AZELASTINE
  5. LISINOPRIL [Concomitant]
     Active Substance: LISINOPRIL
  6. PROSCAR [Concomitant]
     Active Substance: FINASTERIDE
  7. ZOLOFT [Concomitant]
     Active Substance: SERTRALINE HYDROCHLORIDE
  8. NORVASC [Concomitant]
     Active Substance: AMLODIPINE BESYLATE
  9. GABAPENTIN [Concomitant]
     Active Substance: GABAPENTIN
  10. KENALOG [Concomitant]
     Active Substance: TRIAMCINOLONE ACETONIDE
  11. LEVOTHYROXINE [Concomitant]
     Active Substance: LEVOTHYROXINE
  12. LIPITOR [Concomitant]
     Active Substance: ATORVASTATIN CALCIUM
  13. FLUOROURACIL [Concomitant]
     Active Substance: FLUOROURACIL
  14. PREDNISONE [Concomitant]
     Active Substance: PREDNISONE

REACTIONS (1)
  - Death [Fatal]

NARRATIVE: CASE EVENT DATE: 20220417
